FAERS Safety Report 20044546 (Version 1)
Quarter: 2021Q4

REPORT INFORMATION
  Report Type: Spontaneous
  Country: CN (occurrence: CN)
  Receive Date: 20211108
  Receipt Date: 20211108
  Transmission Date: 20220303
  Serious: Yes (Hospitalization, Other)
  Sender: FDA-Public Use
  Company Number: CN-BAXTER-2021BAX034586

PATIENT
  Age: 38 Year
  Sex: Female
  Weight: 62 kg

DRUGS (6)
  1. CYCLOPHOSPHAMIDE [Suspect]
     Active Substance: CYCLOPHOSPHAMIDE
     Indication: Breast cancer female
     Dosage: CYCLOPHOSPHAMIDE FOR INJECTION 0.9 G + 0.9% SODIUM CHLORIDE INJECTION 500ML FOR 150 MINUTES
     Route: 041
     Dates: start: 20211015, end: 20211015
  2. SODIUM CHLORIDE [Suspect]
     Active Substance: SODIUM CHLORIDE
     Indication: Medication dilution
     Dosage: TRASTUZUMAB INJECTION 354 MG + 0.9% SODIUM CHLORIDE INJECTION 250ML FOR 60 MINUTES
     Route: 041
     Dates: start: 20211014, end: 20211014
  3. SODIUM CHLORIDE [Suspect]
     Active Substance: SODIUM CHLORIDE
     Dosage: DOCETAXEL INJECTION 120 MG + 0.9% SODIUM CHLORIDE INJECTION 350ML FOR 80 MINUTES
     Route: 041
     Dates: start: 20211015, end: 20211015
  4. SODIUM CHLORIDE [Suspect]
     Active Substance: SODIUM CHLORIDE
     Dosage: CYCLOPHOSPHAMIDE FOR INJECTION 0.9 G + 0.9% SODIUM CHLORIDE INJECTION 500ML FOR 150 MINUTES
     Route: 041
     Dates: start: 20211015, end: 20211015
  5. DOCETAXEL [Suspect]
     Active Substance: DOCETAXEL
     Indication: Breast cancer female
     Dosage: DOCETAXEL INJECTION 120 MG + 0.9% SODIUM CHLORIDE INJECTION 350ML FOR 80 MINUTES
     Route: 041
     Dates: start: 20211015, end: 20211015
  6. TRASTUZUMAB [Suspect]
     Active Substance: TRASTUZUMAB
     Indication: Breast cancer female
     Dosage: TRASTUZUMAB INJECTION 354 MG + 0.9% SODIUM CHLORIDE INJECTION 250ML FOR 60 MINUTES
     Route: 041
     Dates: start: 20211014, end: 20211014

REACTIONS (3)
  - Neutrophil count decreased [Recovering/Resolving]
  - Pain [Recovering/Resolving]
  - Myelosuppression [Recovering/Resolving]

NARRATIVE: CASE EVENT DATE: 20211021
